FAERS Safety Report 8898840 (Version 1)
Quarter: 2012Q4

REPORT INFORMATION
  Report Type: 
  Country: US (occurrence: US)
  Receive Date: 20121108
  Receipt Date: 20121108
  Transmission Date: 20130627
  Serious: No
  Sender: FDA-Public Use
  Company Number: US-AMGEN-USASP2012027918

PATIENT
  Age: 38 Year
  Sex: Male
  Weight: 48.98 kg

DRUGS (3)
  1. ENBREL [Suspect]
     Indication: PRODUCT USED FOR UNKNOWN INDICATION
     Dosage: 50 mg, 2 times/wk
     Route: 058
  2. CLOBEX                             /00337102/ [Concomitant]
     Dosage: 0.05 %, UNK
  3. VECTICAL [Concomitant]
     Dosage: 3 mug, UNK

REACTIONS (1)
  - Injection site bruising [Recovering/Resolving]
